FAERS Safety Report 9494006 (Version 1)
Quarter: 2013Q3

REPORT INFORMATION
  Report Type: Spontaneous
  Country: US (occurrence: None)
  Receive Date: 20130829
  Receipt Date: 20130829
  Transmission Date: 20140515
  Serious: Yes (Hospitalization)
  Sender: FDA-Public Use
  Company Number: None

PATIENT
  Age: 52 Year
  Sex: Male
  Weight: 61.4 kg

DRUGS (1)
  1. PROLASTIN [Suspect]
     Indication: ALPHA-1 ANTI-TRYPSIN DEFICIENCY
     Dosage: STILL RESEARCHING DOSE WEEKLY IV
     Route: 042
     Dates: start: 20130726

REACTIONS (6)
  - Hypoaesthesia [None]
  - Dizziness [None]
  - Hyperhidrosis [None]
  - Hypoaesthesia [None]
  - Hypoaesthesia [None]
  - Infusion related reaction [None]
